FAERS Safety Report 11414086 (Version 1)
Quarter: 2015Q3

REPORT INFORMATION
  Report Type: Spontaneous
  Country: US (occurrence: US)
  Receive Date: 20150824
  Receipt Date: 20150824
  Transmission Date: 20151125
  Serious: No
  Sender: FDA-Public Use
  Company Number: US-TAKEDA-2015TUS011074

PATIENT
  Sex: Male

DRUGS (3)
  1. LEXAPRO [Concomitant]
     Active Substance: ESCITALOPRAM OXALATE
     Indication: DEPRESSION
     Route: 048
  2. SEROQUEL [Concomitant]
     Active Substance: QUETIAPINE FUMARATE
     Indication: TACHYPHRENIA
     Dosage: UNK
     Route: 048
  3. ROZEREM [Suspect]
     Active Substance: RAMELTEON
     Indication: INSOMNIA
     Dosage: 8 MG, QD
     Route: 048
     Dates: start: 201508, end: 201508

REACTIONS (2)
  - Drug ineffective [Recovered/Resolved]
  - Terminal insomnia [Recovered/Resolved]

NARRATIVE: CASE EVENT DATE: 201508
